FAERS Safety Report 12554541 (Version 2)
Quarter: 2016Q3

REPORT INFORMATION
  Report Type: Report from Study
  Country: US (occurrence: US)
  Receive Date: 20160713
  Receipt Date: 20160727
  Transmission Date: 20161109
  Serious: Yes (Hospitalization)
  Sender: FDA-Public Use
  Company Number: PHHO2016US009837

PATIENT
  Age: 58 Year
  Sex: Male

DRUGS (6)
  1. CTL119 [Suspect]
     Active Substance: INVESTIGATIONAL PRODUCT
     Indication: CHRONIC LYMPHOCYTIC LEUKAEMIA
     Dosage: 5.0E+07 HUCART-19 CELLS (10%), 1.95E+08 TOTAL CELLS
     Route: 042
     Dates: start: 20160621, end: 20160621
  2. CTL119 [Suspect]
     Active Substance: INVESTIGATIONAL PRODUCT
     Dosage: 3.0E+08 HUCART-19 CELLS, 1.17E+09 TOTAL CELLS (60%)
     Route: 042
     Dates: start: 20160623, end: 20160623
  3. FLUDARABINE [Concomitant]
     Active Substance: FLUDARABINE PHOSPHATE
     Indication: CHRONIC LYMPHOCYTIC LEUKAEMIA
     Dosage: 55 MG, UNK
     Route: 042
     Dates: start: 20160615, end: 20160617
  4. CYTOXAN [Concomitant]
     Active Substance: CYCLOPHOSPHAMIDE
     Indication: CHRONIC LYMPHOCYTIC LEUKAEMIA
     Dosage: 545 MG, UNK
     Route: 042
     Dates: start: 20160615, end: 20160617
  5. CTL119 [Suspect]
     Active Substance: INVESTIGATIONAL PRODUCT
     Dosage: 1.5E+08 HUCART-19 CELLS, 5.86E+08 TOTAL CELLS (30%)
     Route: 042
     Dates: start: 20160622, end: 20160622
  6. IBRUTINIB [Concomitant]
     Active Substance: IBRUTINIB
     Indication: PRODUCT USED FOR UNKNOWN INDICATION
     Dosage: UNK
     Dates: start: 20120412

REACTIONS (1)
  - Cytokine release syndrome [Recovered/Resolved]

NARRATIVE: CASE EVENT DATE: 20160628
